FAERS Safety Report 8499537-8 (Version None)
Quarter: 2012Q2

REPORT INFORMATION
  Report Type: 
  Country: None (occurrence: None)
  Receive Date: 20120629
  Receipt Date: 20120618
  Transmission Date: 20120825
  Serious: Yes (Other)
  Sender: FDA-Public Use
  Company Number: AXC-2012-000281

PATIENT
  Age: 36 Year
  Sex: Female

DRUGS (1)
  1. URSODEOXYCHOLIC ACID (URSODEOXYCHOLIC ACID) UNKNOWN [Suspect]
     Indication: PRODUCT USED FOR UNKNOWN INDICATION
     Dosage: , ORAL
     Route: 048

REACTIONS (5)
  - APLASIA PURE RED CELL [None]
  - VIRAL INFECTION [None]
  - HEPATITIS [None]
  - MATERNAL EXPOSURE DURING PREGNANCY [None]
  - HISTIOCYTOSIS HAEMATOPHAGIC [None]
